FAERS Safety Report 16559472 (Version 1)
Quarter: 2019Q3

REPORT INFORMATION
  Report Type: Spontaneous
  Country: US (occurrence: US)
  Receive Date: 20190710
  Receipt Date: 20190710
  Transmission Date: 20191004
  Serious: No
  Sender: FDA-Public Use
  Company Number: None

PATIENT
  Age: 32 Year
  Sex: Male

DRUGS (2)
  1. FLUCONAZOLE 150MG [Concomitant]
     Active Substance: FLUCONAZOLE
     Dates: start: 20190417
  2. BIKTARVY [Suspect]
     Active Substance: BICTEGRAVIR SODIUM\EMTRICITABINE\TENOFOVIR ALAFENAMIDE FUMARATE
     Route: 048
     Dates: start: 20190417

REACTIONS (1)
  - Insomnia [None]

NARRATIVE: CASE EVENT DATE: 20190626
